FAERS Safety Report 5347910-9 (Version None)
Quarter: 2007Q2

REPORT INFORMATION
  Report Type: 
  Country: None (occurrence: None)
  Receive Date: 20070606
  Receipt Date: 20070601
  Transmission Date: 20071010
  Serious: Yes (Hospitalization)
  Sender: FDA-Public Use
  Company Number: A0651190A

PATIENT
  Age: 66 Year
  Sex: Female
  Weight: 75.7 kg

DRUGS (9)
  1. TYKERB [Suspect]
     Indication: BREAST CANCER
     Dosage: 1250MG PER DAY
     Route: 048
     Dates: start: 20070301
  2. GEMZAR [Suspect]
     Indication: DRUG USE FOR UNKNOWN INDICATION
  3. HERCEPTIN [Concomitant]
  4. ZOMETA [Concomitant]
  5. ALOXI [Concomitant]
  6. ZETIA [Concomitant]
  7. KEPPRA [Concomitant]
  8. PREVACID [Concomitant]
  9. XANAX [Concomitant]

REACTIONS (2)
  - PRURITUS [None]
  - RASH [None]
